FAERS Safety Report 6568580-8 (Version None)
Quarter: 2010Q1

REPORT INFORMATION
  Report Type: 
  Country: None (occurrence: None)
  Receive Date: 20100203
  Receipt Date: 20100127
  Transmission Date: 20100710
  Serious: Yes (Other)
  Sender: FDA-Public Use
  Company Number: GB-PFIZER INC-2010010857

PATIENT
  Sex: Female

DRUGS (1)
  1. PREGABALIN [Suspect]
     Dosage: 75 MG, 2X/DAY

REACTIONS (9)
  - APHASIA [None]
  - DIZZINESS [None]
  - DYSARTHRIA [None]
  - DYSKINESIA [None]
  - MALAISE [None]
  - MUSCLE RIGIDITY [None]
  - MUSCLE SPASTICITY [None]
  - NAUSEA [None]
  - PANIC DISORDER [None]
